FAERS Safety Report 9498672 (Version 1)
Quarter: 2013Q3

REPORT INFORMATION
  Report Type: Spontaneous
  Country: US (occurrence: US)
  Receive Date: 20130904
  Receipt Date: 20130904
  Transmission Date: 20140515
  Serious: Yes (Other)
  Sender: FDA-Public Use
  Company Number: US-ROXANE LABORATORIES, INC.-2013-RO-01455RO

PATIENT
  Age: 34 Year
  Sex: Male

DRUGS (3)
  1. PREDNISONE [Suspect]
     Indication: COCCIDIOIDOMYCOSIS
  2. BENADRYL [Suspect]
     Indication: COCCIDIOIDOMYCOSIS
     Route: 061
  3. KETOCONAZOLE [Suspect]
     Indication: COCCIDIOIDOMYCOSIS

REACTIONS (1)
  - Coccidioidomycosis [Recovered/Resolved]
